FAERS Safety Report 5089597-9 (Version None)
Quarter: 2006Q3

REPORT INFORMATION
  Report Type: 
  Country: None (occurrence: None)
  Receive Date: 20060822
  Receipt Date: 20060801
  Transmission Date: 20061208
  Serious: Yes (Hospitalization)
  Sender: FDA-Public Use
  Company Number: US200606000401

PATIENT
  Sex: Female
  Weight: 95.2 kg

DRUGS (1)
  1. ZYPREXA [Suspect]
     Indication: DRUG USE FOR UNKNOWN INDICATION
     Dates: start: 20000401, end: 20031101

REACTIONS (3)
  - DIABETES MELLITUS [None]
  - THYROID CANCER [None]
  - VISION BLURRED [None]
